FAERS Safety Report 15887771 (Version 1)
Quarter: 2019Q1

REPORT INFORMATION
  Report Type: Spontaneous
  Country: FR (occurrence: FR)
  Receive Date: 20190130
  Receipt Date: 20190130
  Transmission Date: 20190417
  Serious: Yes (Hospitalization)
  Sender: FDA-Public Use
  Company Number: FR-TEVA-2019-FR-1005278

PATIENT
  Age: 101 Year
  Sex: Female
  Weight: 44 kg

DRUGS (13)
  1. BISOPROLOL (FUMARATE ACIDE DE) [Suspect]
     Active Substance: BISOPROLOL FUMARATE
     Indication: HYPERTENSION
     Dosage: 1.25 MILLIGRAM DAILY; 1-0-0
     Route: 048
     Dates: start: 20181102
  2. CHLORURE DE SODIUM [Suspect]
     Active Substance: SODIUM CHLORIDE
     Indication: HYPONATRAEMIA
     Dosage: 2000 MILLIGRAM DAILY; 2-0-2
     Route: 048
     Dates: start: 20181102
  3. OFLOCET 200 MG, COMPRIM? PELLICUL? S?CABLE [Suspect]
     Active Substance: OFLOXACIN
     Indication: RESPIRATORY TRACT INFECTION
     Dosage: 400 MILLIGRAM DAILY; 1-0-1
     Route: 048
     Dates: start: 20181122, end: 20181127
  4. KARDEGIC [Suspect]
     Active Substance: ASPIRIN DL-LYSINE
     Indication: THROMBOSIS PROPHYLAXIS
     Dosage: 75 MILLIGRAM DAILY; 1-0-0
     Route: 048
     Dates: start: 20181102
  5. FUROSEMIDE. [Suspect]
     Active Substance: FUROSEMIDE
     Indication: HYPERTENSION
     Dosage: 20 MILLIGRAM DAILY; 1/2-0-0 (40MG)
     Route: 048
     Dates: start: 20181102
  6. SALBUTAMOL [Suspect]
     Active Substance: ALBUTEROL
     Indication: ASTHMA
     Dosage: 2 DOSAGE FORMS DAILY; 1-0-1 (2.5M/2.5ML)
     Route: 055
     Dates: start: 20181102, end: 20181129
  7. VITAMIN D3 [Suspect]
     Active Substance: CHOLECALCIFEROL
     Indication: HYPOVITAMINOSIS
     Dosage: 1-0-0
     Route: 048
     Dates: start: 20181102
  8. BUDESONIDE. [Suspect]
     Active Substance: BUDESONIDE
     Indication: ASTHMA
     Dosage: 2 DOSAGE FORMS DAILY; 1-0-1 (1MG/2ML)
     Route: 055
     Dates: start: 20181102, end: 20181129
  9. REFRESH CELLUVISC [Suspect]
     Active Substance: CARBOXYMETHYLCELLULOSE SODIUM
     Indication: LACRIMATION DECREASED
     Dosage: 3 GTT DAILY; 1-1-1 GTE IN BOTH EYES
     Route: 047
     Dates: start: 20181102
  10. DIGOXINE [Suspect]
     Active Substance: DIGOXIN
     Indication: CARDIAC FAILURE
     Dosage: 1 DOSAGE FORMS DAILY; 1/2-0-0 (0.25MG)
     Route: 048
     Dates: start: 20181102, end: 20181206
  11. OXAZEPAM. [Suspect]
     Active Substance: OXAZEPAM
     Indication: ANXIETY
     Dosage: 5 MILLIGRAM DAILY; 0-0-1/2 (10 MG)
     Route: 048
     Dates: start: 20181102, end: 20181206
  12. MACROGOL (DISTEARATE DE) [Suspect]
     Active Substance: POLYETHYLENE GLYCOLS
     Indication: CONSTIPATION
     Dosage: 20 GRAM DAILY; 2-0-0
     Route: 048
     Dates: start: 20181102
  13. CALCIUM (ACETATE DE) [Suspect]
     Active Substance: CALCIUM ACETATE
     Indication: HYPOVITAMINOSIS
     Dosage: 1 DOSAGE FORMS DAILY; 1-0-0
     Route: 048
     Dates: start: 20181102

REACTIONS (2)
  - Hallucination [Recovering/Resolving]
  - Confusional state [Recovering/Resolving]

NARRATIVE: CASE EVENT DATE: 20181123
